FAERS Safety Report 26054715 (Version 2)
Quarter: 2025Q4

REPORT INFORMATION
  Report Type: Report from Study
  Country: EU (occurrence: EU)
  Receive Date: 20251117
  Receipt Date: 20251119
  Transmission Date: 20260117
  Serious: Yes (Hospitalization)
  Sender: ABBVIE
  Company Number: EU-ABBVIE-6548877

PATIENT
  Age: 69 Year
  Sex: Male

DRUGS (3)
  1. FOSCARBIDOPA\FOSLEVODOPA [Suspect]
     Active Substance: FOSCARBIDOPA\FOSLEVODOPA
     Indication: Parkinson^s disease
     Route: 058
     Dates: start: 20251013, end: 20251112
  2. FOSCARBIDOPA\FOSLEVODOPA [Suspect]
     Active Substance: FOSCARBIDOPA\FOSLEVODOPA
     Dosage: NIGHT DOSE WAS REDUCED. ED 0.15 LR 0.28 HR 0.48 BR 0.46 LD 0.8.?LAST ADMIN DATE : NOV 2025
     Route: 058
     Dates: start: 20251112
  3. FOSCARBIDOPA\FOSLEVODOPA [Suspect]
     Active Substance: FOSCARBIDOPA\FOSLEVODOPA
     Dosage: NIGHT DOSE REDUCED FROM 0.28 TO 0.25, ED : 0.15, LR : 0.25, HR : 0.48, BR : 0.46, LD :0.80??FIRST...
     Route: 058

REACTIONS (8)
  - Pneumonia [Unknown]
  - Pulmonary oedema [Unknown]
  - Hallucination [Not Recovered/Not Resolved]
  - Confusional state [Unknown]
  - On and off phenomenon [Recovering/Resolving]
  - Nodule [Unknown]
  - Haematoma [Unknown]
  - Dyskinesia [Unknown]

NARRATIVE: CASE EVENT DATE: 20250101
